FAERS Safety Report 5084637-5 (Version None)
Quarter: 2006Q3

REPORT INFORMATION
  Report Type: 
  Country: None (occurrence: None)
  Receive Date: 20060821
  Receipt Date: 20060719
  Transmission Date: 20061208
  Serious: Yes (Hospitalization)
  Sender: FDA-Public Use
  Company Number: JP-ROCHE-456325

PATIENT
  Age: 46 Year
  Sex: Female
  Weight: 68 kg

DRUGS (4)
  1. ROCEPHIN [Suspect]
     Indication: BACTERIAL INFECTION
     Route: 041
     Dates: start: 20060710, end: 20060711
  2. KEFRAL [Suspect]
     Indication: BACTERIAL INFECTION
     Route: 048
     Dates: start: 20060705, end: 20060706
  3. MINOCYCLINE HCL [Suspect]
     Indication: BACTERIAL INFECTION
     Dosage: DOSE FORM: ORAL FORMULATION NOT OTHERWISE SPECIFIED.
     Route: 048
     Dates: start: 20060710, end: 20060712
  4. CALONAL [Concomitant]
     Route: 048
     Dates: start: 20060710, end: 20060712

REACTIONS (4)
  - DRUG HYPERSENSITIVITY [None]
  - EOSINOPHILIA [None]
  - ERYTHEMA MULTIFORME [None]
  - LYMPHOCYTE STIMULATION TEST POSITIVE [None]
